FAERS Safety Report 21565348 (Version 1)
Quarter: 2022Q4

REPORT INFORMATION
  Report Type: Spontaneous
  Country: US (occurrence: None)
  Receive Date: 20221107
  Receipt Date: 20221107
  Transmission Date: 20230113
  Serious: Yes (Death)
  Sender: FDA-Public Use
  Company Number: None

PATIENT
  Age: 73 Year
  Sex: Male
  Weight: 96.66 kg

DRUGS (22)
  1. CAPECITABINE [Suspect]
     Active Substance: CAPECITABINE
     Dosage: FREQUENCY : TWICE A DAY;?
     Route: 048
  2. ADVAIR DISKUS [Concomitant]
     Active Substance: FLUTICASONE PROPIONATE\SALMETEROL XINAFOATE
  3. ADVIL [Concomitant]
     Active Substance: IBUPROFEN
  4. DILAUDID [Concomitant]
     Active Substance: HYDROMORPHONE HYDROCHLORIDE
  5. FAMOTIDINE [Concomitant]
     Active Substance: FAMOTIDINE
  6. FENTANYL [Concomitant]
     Active Substance: FENTANYL
  7. FLONASE [Concomitant]
     Active Substance: FLUTICASONE PROPIONATE
  8. FUROSEMIDE [Concomitant]
     Active Substance: FUROSEMIDE
  9. GABAPENTIN [Concomitant]
     Active Substance: GABAPENTIN
  10. KLOR-CON [Concomitant]
     Active Substance: POTASSIUM CHLORIDE
  11. LEVEMIR [Concomitant]
     Active Substance: INSULIN DETEMIR
  12. METOPROLOL [Concomitant]
     Active Substance: METOPROLOL
  13. MONTELUKAST [Concomitant]
     Active Substance: MONTELUKAST SODIUM
  14. MUCINEX [Concomitant]
     Active Substance: GUAIFENESIN
  15. MYSOLINE [Concomitant]
     Active Substance: PRIMIDONE
  16. NOVOLOG [Concomitant]
     Active Substance: INSULIN ASPART
  17. OZEMPIC [Concomitant]
     Active Substance: SEMAGLUTIDE
  18. PREDNISONE [Concomitant]
     Active Substance: PREDNISONE
  19. SERTRALINE [Concomitant]
     Active Substance: SERTRALINE HYDROCHLORIDE
  20. VALSARTAN [Concomitant]
     Active Substance: VALSARTAN
  21. VASCEPA [Concomitant]
     Active Substance: ICOSAPENT ETHYL
  22. ZINC OXIDE [Concomitant]
     Active Substance: ZINC OXIDE

REACTIONS (1)
  - Death [None]
